FAERS Safety Report 7540145-0 (Version None)
Quarter: 2011Q2

REPORT INFORMATION
  Report Type: 
  Country: None (occurrence: None)
  Receive Date: 20110610
  Receipt Date: 20110601
  Transmission Date: 20111010
  Serious: Yes (Other)
  Sender: FDA-Public Use
  Company Number: US-ASTRAZENECA-2011SE33788

PATIENT
  Age: 54 Year
  Sex: Female
  Weight: 63.5 kg

DRUGS (4)
  1. SIMVASTATIN [Concomitant]
  2. FLUOXETINE HCL [Concomitant]
  3. SEROQUEL [Suspect]
     Indication: BIPOLAR DISORDER
     Route: 048
     Dates: start: 20100901, end: 20110401
  4. LEVOTHYROXINE SODIUM [Concomitant]

REACTIONS (5)
  - BALANCE DISORDER [None]
  - ACCIDENT [None]
  - CONFUSIONAL STATE [None]
  - GAIT DISTURBANCE [None]
  - IMPAIRED SELF-CARE [None]
